FAERS Safety Report 5126265-9 (Version None)
Quarter: 2006Q3

REPORT INFORMATION
  Report Type: 
  Country: None (occurrence: None)
  Receive Date: 20060824
  Receipt Date: 20060605
  Transmission Date: 20061208
  Serious: Yes (Other)
  Sender: FDA-Public Use
  Company Number: WAES 0606USA01288

PATIENT
  Age: 51 Year
  Sex: Male

DRUGS (5)
  1. VYTORIN [Suspect]
     Indication: LOW DENSITY LIPOPROTEIN INCREASED
     Dosage: 10-80 MG/DAILY/PO
     Route: 048
     Dates: start: 20050729, end: 20060525
  2. ALTACE [Concomitant]
  3. TOPROL-XL [Concomitant]
  4. OMEGA-3 MARINE TRIGLYCERIDES [Concomitant]
  5. VITAMINS [Concomitant]

REACTIONS (4)
  - DIARRHOEA [None]
  - FOOD POISONING [None]
  - PANCREATITIS [None]
  - SPLEEN DISORDER [None]
